FAERS Safety Report 12225644 (Version 1)
Quarter: 2016Q1

REPORT INFORMATION
  Report Type: Report from Study
  Country: US (occurrence: US)
  Receive Date: 20160331
  Receipt Date: 20160331
  Transmission Date: 20160526
  Serious: Yes (Hospitalization)
  Sender: FDA-Public Use
  Company Number: US-JNJFOC-20160117062

PATIENT
  Sex: Male

DRUGS (1)
  1. IMBRUVICA [Suspect]
     Active Substance: IBRUTINIB
     Indication: CHRONIC LYMPHOCYTIC LEUKAEMIA
     Route: 048
     Dates: start: 201601, end: 2016

REACTIONS (11)
  - Dysgeusia [Unknown]
  - Renal function test abnormal [Unknown]
  - Liver function test abnormal [Unknown]
  - Influenza [Recovering/Resolving]
  - Asthenia [Recovering/Resolving]
  - Respiratory syncytial virus infection [Unknown]
  - Peripheral swelling [Recovering/Resolving]
  - Fall [Recovering/Resolving]
  - Pneumonia [Recovering/Resolving]
  - Oral fungal infection [Recovering/Resolving]
  - Abdominal discomfort [Unknown]

NARRATIVE: CASE EVENT DATE: 2016
